FAERS Safety Report 18622750 (Version 1)
Quarter: 2020Q4

REPORT INFORMATION
  Report Type: Spontaneous
  Country: FR (occurrence: FR)
  Receive Date: 20201216
  Receipt Date: 20201216
  Transmission Date: 20210114
  Serious: Yes (Hospitalization)
  Sender: FDA-Public Use
  Company Number: FR-BAYER-2020-211208

PATIENT
  Age: 46 Year
  Sex: Male
  Weight: 88 kg

DRUGS (2)
  1. GADOVIST [Suspect]
     Active Substance: GADOBUTROL
     Indication: MAGNETIC RESONANCE IMAGING LIVER
     Dosage: 9 ML, ONCE
     Route: 042
     Dates: start: 20200925, end: 20200925
  2. GADOVIST [Suspect]
     Active Substance: GADOBUTROL
     Indication: HEPATIC LESION

REACTIONS (5)
  - Hypotension [None]
  - Malaise [None]
  - Abdominal pain [Recovered/Resolved]
  - Tetany [Recovered/Resolved]
  - Hypertension [Recovered/Resolved]

NARRATIVE: CASE EVENT DATE: 20200925
